FAERS Safety Report 22989125 (Version 2)
Quarter: 2024Q1

REPORT INFORMATION
  Report Type: Spontaneous
  Country: GB (occurrence: GB)
  Receive Date: 20230927
  Receipt Date: 20240131
  Transmission Date: 20240410
  Serious: Yes (Other)
  Sender: FDA-Public Use
  Company Number: GB-NOVOPROD-1102413

PATIENT
  Age: 38 Year
  Sex: Male

DRUGS (9)
  1. SAXENDA [Suspect]
     Active Substance: LIRAGLUTIDE
     Indication: Weight control
     Dosage: 0.60 MG, QD
     Dates: start: 202210, end: 20230811
  2. CLONAZEPAM [Concomitant]
     Active Substance: CLONAZEPAM
     Indication: Product used for unknown indication
     Dosage: 500 MG
  3. CONCERTA [Concomitant]
     Active Substance: METHYLPHENIDATE HYDROCHLORIDE
     Indication: Product used for unknown indication
     Dosage: 54 MG, QD
  4. DULOXETINE [Concomitant]
     Active Substance: DULOXETINE
     Indication: Product used for unknown indication
     Dosage: 120 MG
  5. DULOXETINE [Concomitant]
     Active Substance: DULOXETINE
     Dosage: 120 MG(DOSE INCRAESED)
  6. DULOXETINE [Concomitant]
     Active Substance: DULOXETINE
     Dosage: 90 MG(DOSE REDUCED)
  7. LANSOPRAZOLE [Concomitant]
     Active Substance: LANSOPRAZOLE
     Dosage: 15 MG
  8. ZOPICLONE [Concomitant]
     Active Substance: ZOPICLONE
     Dosage: UNK
  9. FERROUS SULFATE [Concomitant]
     Active Substance: FERROUS SULFATE
     Dosage: UNK

REACTIONS (4)
  - Suicidal ideation [Unknown]
  - Mental disorder [Unknown]
  - Condition aggravated [Unknown]
  - Sleep disorder [Unknown]

NARRATIVE: CASE EVENT DATE: 20230811
